FAERS Safety Report 19046378 (Version 2)
Quarter: 2022Q1

REPORT INFORMATION
  Report Type: Spontaneous
  Country: US (occurrence: US)
  Receive Date: 20210323
  Receipt Date: 20220216
  Transmission Date: 20220423
  Serious: Yes (Other)
  Sender: FDA-Public Use
  Company Number: US-PFIZER INC-2015072209

PATIENT
  Age: 72 Year
  Sex: Female
  Weight: 63.492 kg

DRUGS (3)
  1. XELJANZ [Suspect]
     Active Substance: TOFACITINIB CITRATE
     Dosage: 5 MG, 2X/DAY (5 MG AT MORNING AND 5 MG AT NIGHT)
     Dates: start: 201401
  2. PREDNISONE [Concomitant]
     Active Substance: PREDNISONE
     Indication: Arthritis
     Dosage: 10 MG, 1X/DAY
  3. LOFEPRAMINE [Concomitant]
     Active Substance: LOFEPRAMINE
     Indication: Arthritis
     Dosage: 20 MG, 1X/DAY

REACTIONS (2)
  - Keratomileusis [Unknown]
  - Musculoskeletal discomfort [Unknown]
